FAERS Safety Report 10162464 (Version 1)
Quarter: 2014Q2

REPORT INFORMATION
  Report Type: Spontaneous
  Country: GB (occurrence: GB)
  Receive Date: 20140509
  Receipt Date: 20140509
  Transmission Date: 20141212
  Serious: Yes (Hospitalization)
  Sender: FDA-Public Use
  Company Number: GB-WATSON-2014-05472

PATIENT
  Age: 59 Year
  Sex: Male
  Weight: 76 kg

DRUGS (1)
  1. INDOMETACIN (UNKNOWN) [Suspect]
     Indication: GOUT
     Dosage: 450 MG, UNK
     Route: 048
     Dates: start: 20140211, end: 20140221

REACTIONS (1)
  - Pancreatitis [Recovering/Resolving]
